FAERS Safety Report 18700193 (Version 1)
Quarter: 2021Q1

REPORT INFORMATION
  Report Type: Spontaneous
  Country: US (occurrence: US)
  Receive Date: 20210104
  Receipt Date: 20210104
  Transmission Date: 20210419
  Serious: Yes (Death, Life-Threatening, Hospitalization)
  Sender: FDA-Public Use
  Company Number: None

PATIENT
  Age: 76 Year
  Sex: Male
  Weight: 87 kg

DRUGS (18)
  1. AMPICILLIN?SULBACTAM 3 G IV [Concomitant]
     Dates: start: 20201217, end: 20201221
  2. PROPOFOL 10 MG/ML 100ML [Concomitant]
     Dates: start: 20201220, end: 20201225
  3. DILTIAZEM 1 MG/ML 125 ML [Concomitant]
     Dates: start: 20201220, end: 20201222
  4. ENOXAPARIN 40 MG INJECTION [Concomitant]
     Dates: start: 20201217, end: 20201221
  5. VEKLURY [Suspect]
     Active Substance: REMDESIVIR
     Indication: COVID-19
     Route: 042
     Dates: start: 20201218, end: 20201221
  6. ZINC SULFATE 220 MG CAPSULES [Concomitant]
     Dates: start: 20201217, end: 20201227
  7. CEFAZOLIN 2 G/D5W 100 ML [Concomitant]
     Dates: start: 20201221, end: 20201226
  8. NOREPINEPHRINE 4 MG/ NORMAL SALINE 250 ML [Concomitant]
     Dates: start: 20201220, end: 20201227
  9. ASCORBIC ACID 500 MG TABS [Concomitant]
     Dates: start: 20201217, end: 20201227
  10. PHENYLEPHRINE 40 MG/NORMAL SALINE 250 ML [Concomitant]
     Dates: start: 20201221, end: 20201225
  11. VEKLURY [Suspect]
     Active Substance: REMDESIVIR
     Indication: OXYGEN THERAPY
     Dosage: ?          OTHER FREQUENCY:ONCE;?
     Route: 042
     Dates: start: 20201218, end: 20201218
  12. VEKLURY [Suspect]
     Active Substance: REMDESIVIR
     Indication: OXYGEN THERAPY
     Route: 042
     Dates: start: 20201218, end: 20201221
  13. DEXAMETHASONE 6 MG TAB [Concomitant]
     Dates: start: 20201217, end: 20201227
  14. VEKLURY [Suspect]
     Active Substance: REMDESIVIR
     Indication: SARS-COV-2 TEST POSITIVE
     Dosage: ?          OTHER FREQUENCY:ONCE;?
     Route: 042
     Dates: start: 20201218, end: 20201218
  15. DULOXETINE DR 60 MG CAPSULES [Concomitant]
     Active Substance: DULOXETINE HYDROCHLORIDE
     Dates: start: 20201217, end: 20201227
  16. SOTALOL 160 MG TAB [Concomitant]
     Dates: start: 20201217, end: 20201227
  17. ASPIRIN CHEWABLE 81 MG TAB [Concomitant]
     Dates: start: 20201223, end: 20201227
  18. ASPIRIN EC 81 MG TAB [Concomitant]
     Dates: start: 20201217, end: 20201222

REACTIONS (5)
  - Atrial fibrillation [None]
  - Inappropriate schedule of product administration [None]
  - Ischaemic hepatitis [None]
  - Incorrect dose administered [None]
  - Drug monitoring procedure incorrectly performed [None]

NARRATIVE: CASE EVENT DATE: 20201218
